FAERS Safety Report 7956879-X (Version None)
Quarter: 2011Q4

REPORT INFORMATION
  Report Type: 
  Country: None (occurrence: None)
  Receive Date: 20111205
  Receipt Date: 20111128
  Transmission Date: 20120403
  Serious: Yes (Other)
  Sender: FDA-Public Use
  Company Number: US-BAYER-2011-100315

PATIENT
  Age: 29 Year
  Sex: Female
  Weight: 90.249 kg

DRUGS (8)
  1. MIRENA [Suspect]
     Indication: CONTRACEPTION
     Dosage: 20 MCG/24HR, CONT
     Dates: start: 20090305, end: 20111013
  2. CELEBREX [Concomitant]
  3. INDERAL [Concomitant]
  4. CIPROFLOXACIN [Concomitant]
  5. CELEXA [Concomitant]
  6. LYRICA [Concomitant]
  7. DEXILANT [Concomitant]
  8. KLONOPIN [Concomitant]

REACTIONS (3)
  - ABDOMINAL PAIN [None]
  - NO ADVERSE EVENT [None]
  - DEVICE DISLOCATION [None]
